FAERS Safety Report 4916594-3 (Version None)
Quarter: 2006Q1

REPORT INFORMATION
  Report Type: 
  Country: None (occurrence: None)
  Receive Date: 20060220
  Receipt Date: 20060117
  Transmission Date: 20060701
  Serious: Yes (Hospitalization)
  Sender: FDA-Public Use
  Company Number: GB-GLAXOSMITHKLINE-B0406826A

PATIENT
  Age: 74 Year
  Sex: Male

DRUGS (7)
  1. REQUIP [Suspect]
     Indication: PARKINSON'S DISEASE
     Dosage: .25MG THREE TIMES PER DAY
     Route: 048
     Dates: start: 20060101, end: 20060103
  2. MADOPAR [Concomitant]
     Dosage: 125MG THREE TIMES PER DAY
     Route: 048
     Dates: start: 20050101
  3. SIMVASTATIN [Concomitant]
     Dosage: 20MG PER DAY
     Route: 048
  4. TELMISARTAN [Concomitant]
     Dosage: 20MG PER DAY
     Route: 048
  5. BENDROFLUAZIDE [Concomitant]
     Dosage: 2.5MG PER DAY
     Route: 048
  6. ASPIRIN [Concomitant]
     Dosage: 75MG PER DAY
     Route: 048
  7. GLUCOSAMINE SULPHATE [Concomitant]
     Route: 048

REACTIONS (8)
  - DIZZINESS [None]
  - HYPOTENSION [None]
  - MOBILITY DECREASED [None]
  - NAUSEA [None]
  - NEUTROPENIA [None]
  - PNEUMONIA [None]
  - RASH [None]
  - VASCULITIS [None]
